FAERS Safety Report 12343191 (Version 1)
Quarter: 2016Q2

REPORT INFORMATION
  Report Type: Not Available
  Country: US (occurrence: US)
  Receive Date: 20160506
  Receipt Date: 20160506
  Transmission Date: 20160815
  Serious: Yes (Disabling)
  Sender: FDA-Public Use
  Company Number: US-3M-2016-US-003109

PATIENT
  Sex: Male

DRUGS (1)
  1. PERIOMED [Suspect]
     Active Substance: STANNOUS FLUORIDE
     Route: 048
     Dates: start: 20160317

REACTIONS (1)
  - Ageusia [Recovered/Resolved with Sequelae]

NARRATIVE: CASE EVENT DATE: 20160331
